FAERS Safety Report 9121826 (Version 1)
Quarter: 2012Q4

REPORT INFORMATION
  Report Type: Spontaneous
  Country: US (occurrence: None)
  Receive Date: 20121026
  Receipt Date: 20121026
  Transmission Date: 20130627
  Serious: No
  Sender: FDA-Public Use
  Company Number: 2012US-004344

PATIENT
  Age: 63 Year
  Sex: Male

DRUGS (11)
  1. OMONTYS (PEGINESATIDE) SOLUTION FOR INJECTION [Suspect]
     Indication: NEPHROGENIC ANAEMIA
     Dosage: q 4 weeks
     Route: 042
     Dates: start: 20120810, end: 20120810
  2. EPOGEN (EPOGEN ALFA) [Concomitant]
  3. VITAL-D [Concomitant]
  4. ACTOS (PIOGLITAZONE HYDROCHLORIDE) [Concomitant]
  5. FELODIPINE (FELODIPINE) [Concomitant]
  6. SIMVASTATIN (SIMVASTATIN) [Concomitant]
  7. GLIMEPRIRIDE (GLIMPEIRIDE) [Concomitant]
  8. METOPROLOL (METOPROLOL) [Concomitant]
  9. ASPIRIN (ACETYSALICYLIC ACID) [Concomitant]
  10. CLONIDINE (CLONIDINE) [Concomitant]
  11. RENVELA (SEVELAMER CARBONATE) [Concomitant]

REACTIONS (6)
  - Hypersensitivity [None]
  - Chest discomfort [None]
  - Swollen tongue [None]
  - Retching [None]
  - Flushing [None]
  - Nausea [None]
